FAERS Safety Report 18745634 (Version 1)
Quarter: 2021Q1

REPORT INFORMATION
  Report Type: Spontaneous
  Country: US (occurrence: US)
  Receive Date: 20210115
  Receipt Date: 20210115
  Transmission Date: 20210419
  Serious: Yes (Life-Threatening, Hospitalization)
  Sender: FDA-Public Use
  Company Number: US-MYLANLABS-2021M1001512

PATIENT
  Age: 46 Year
  Sex: Male
  Weight: 84 kg

DRUGS (5)
  1. ACETYLCYSTEINE. [Suspect]
     Active Substance: ACETYLCYSTEINE
     Dosage: RECEIVING A MODIFIED ^STEP 3^ OF...
     Route: 065
  2. PARACETAMOL [Suspect]
     Active Substance: ACETAMINOPHEN
     Indication: PRODUCT USED FOR UNKNOWN INDICATION
     Dosage: 125 GRAM TWO HUNDRED...
     Route: 048
  3. ACETYLCYSTEINE. [Suspect]
     Active Substance: ACETYLCYSTEINE
     Indication: PRODUCT USED FOR UNKNOWN INDICATION
     Dosage: RECEIVED ^STAGE 1^ AND ^STAGE 2...
     Route: 065
  4. DEXTROMETHORPHAN [Concomitant]
     Active Substance: DEXTROMETHORPHAN
     Indication: PRODUCT USED FOR UNKNOWN INDICATION
     Route: 065
  5. PROPYLENE GLYCOL [Suspect]
     Active Substance: PROPYLENE GLYCOL
     Indication: PRODUCT USED FOR UNKNOWN INDICATION
     Dosage: IT WAS INACTIVE INGREDIENT...
     Route: 048

REACTIONS (13)
  - Depressed level of consciousness [Recovered/Resolved]
  - Hyperglycaemia [Recovered/Resolved]
  - International normalised ratio increased [Recovered/Resolved]
  - Off label use [Unknown]
  - Overdose [Recovered/Resolved]
  - Hypotension [Recovered/Resolved]
  - Polyuria [Recovered/Resolved]
  - Alanine aminotransferase increased [Recovered/Resolved]
  - Lactic acidosis [Recovered/Resolved]
  - Aspartate aminotransferase increased [Recovered/Resolved]
  - Albuminuria [Recovered/Resolved]
  - Glycosuria [Recovered/Resolved]
  - Metabolic acidosis [Recovered/Resolved]
